FAERS Safety Report 4682122-3 (Version None)
Quarter: 2005Q2

REPORT INFORMATION
  Report Type: 
  Country: None (occurrence: None)
  Receive Date: 20050531
  Receipt Date: 20050222
  Transmission Date: 20051028
  Serious: Yes (Hospitalization)
  Sender: FDA-Public Use
  Company Number: FABR-11009

PATIENT
  Age: 69 Year
  Sex: Male
  Weight: 64.5 kg

DRUGS (5)
  1. FABRAZYME [Suspect]
     Indication: FABRY'S DISEASE
     Dosage: 70 MG Q2WKS IV
     Route: 042
     Dates: start: 20040902
  2. AGGRENOX [Concomitant]
  3. MULTI-VITAMIN [Concomitant]
  4. 10% HYDROCORTISONE CREAM [Concomitant]
  5. RANITIDINE [Concomitant]

REACTIONS (1)
  - CEREBROVASCULAR ACCIDENT [None]
